FAERS Safety Report 7802155-5 (Version None)
Quarter: 2011Q4

REPORT INFORMATION
  Report Type: 
  Country: None (occurrence: None)
  Receive Date: 20111007
  Receipt Date: 20110927
  Transmission Date: 20120403
  Serious: Yes (Hospitalization)
  Sender: FDA-Public Use
  Company Number: JP-JNJFOC-20101006110

PATIENT
  Age: 60 Year
  Sex: Female

DRUGS (24)
  1. INFLIXIMAB, RECOMBINANT [Suspect]
     Route: 042
     Dates: start: 20070615
  2. INFLIXIMAB, RECOMBINANT [Suspect]
     Route: 042
     Dates: start: 20071204
  3. INFLIXIMAB, RECOMBINANT [Suspect]
     Route: 042
     Dates: start: 20071009
  4. INFLIXIMAB, RECOMBINANT [Suspect]
     Route: 042
     Dates: start: 20071009
  5. INFLIXIMAB, RECOMBINANT [Suspect]
     Route: 042
     Dates: start: 20080129
  6. INFLIXIMAB, RECOMBINANT [Suspect]
     Route: 042
     Dates: start: 20070817
  7. INFLIXIMAB, RECOMBINANT [Suspect]
     Dosage: WEEK 2 OF EXTENSION STUDY
     Route: 042
     Dates: start: 20070508
  8. PLACEBO [Suspect]
     Indication: PSORIASIS
     Dates: start: 20070112
  9. INFLIXIMAB, RECOMBINANT [Suspect]
     Route: 042
     Dates: start: 20070522
  10. INFLIXIMAB, RECOMBINANT [Suspect]
     Route: 042
     Dates: start: 20070522
  11. INFLIXIMAB, RECOMBINANT [Suspect]
     Dosage: WEEK 48 DOSE
     Route: 042
     Dates: start: 20080325
  12. INFLIXIMAB, RECOMBINANT [Suspect]
     Indication: PSORIASIS
     Dosage: WEEK 2 OF EXTENSION STUDY
     Route: 042
     Dates: start: 20070508
  13. INFLIXIMAB, RECOMBINANT [Suspect]
     Route: 042
     Dates: start: 20071204
  14. INFLIXIMAB, RECOMBINANT [Suspect]
     Route: 042
     Dates: start: 20070615
  15. PLACEBO [Suspect]
     Dosage: WEEK 0 OF EXTENSION STUDY
     Dates: start: 20070424, end: 20070424
  16. PLACEBO [Suspect]
     Dates: start: 20070112
  17. PLACEBO [Suspect]
     Indication: PSORIATIC ARTHROPATHY
     Dates: start: 20070126
  18. PLACEBO [Suspect]
     Dates: start: 20070223
  19. PLACEBO [Suspect]
     Dosage: WEEK 0 OF EXTENSION STUDY
     Dates: start: 20070424, end: 20070424
  20. PLACEBO [Suspect]
     Dates: start: 20070126
  21. INFLIXIMAB, RECOMBINANT [Suspect]
     Indication: PSORIATIC ARTHROPATHY
     Route: 042
     Dates: start: 20070817
  22. INFLIXIMAB, RECOMBINANT [Suspect]
     Route: 042
     Dates: start: 20080129
  23. PLACEBO [Suspect]
     Dates: start: 20070223
  24. INFLIXIMAB, RECOMBINANT [Suspect]
     Dosage: WEEK 48 DOSE
     Route: 042
     Dates: start: 20080325

REACTIONS (1)
  - SMALL CELL LUNG CANCER STAGE UNSPECIFIED [None]
